FAERS Safety Report 8227513 (Version 2)
Quarter: 2012Q4

REPORT INFORMATION
  Report Type: 
  Country: US (occurrence: US)
  Receive Date: 20111103
  Receipt Date: 20121107
  Transmission Date: 20130627
  Serious: No
  Sender: FDA-Public Use
  Company Number: US-AMGEN-USASP2011039156

PATIENT
  Age: 38 Year
  Sex: Female

DRUGS (3)
  1. ENBREL [Suspect]
     Indication: RHEUMATOID ARTHRITIS
     Dosage: 50 mg, qwk
     Dates: start: 20110701, end: 201112
  2. ANTIBIOTICS [Concomitant]
     Indication: SINUSITIS
     Dosage: UNK
  3. REMICADE [Concomitant]
     Dosage: UNK

REACTIONS (9)
  - Dry skin [Not Recovered/Not Resolved]
  - Headache [Not Recovered/Not Resolved]
  - Abdominal pain upper [Not Recovered/Not Resolved]
  - Injection site erythema [Unknown]
  - Injection site warmth [Unknown]
  - Rash [Recovered/Resolved]
  - Sinusitis [Recovered/Resolved]
  - Diarrhoea [Not Recovered/Not Resolved]
  - Drug ineffective [Not Recovered/Not Resolved]
